FAERS Safety Report 5212268-2 (Version None)
Quarter: 2007Q1

REPORT INFORMATION
  Report Type: 
  Country: None (occurrence: None)
  Receive Date: 20070118
  Receipt Date: 20070112
  Transmission Date: 20070707
  Serious: Yes (Other)
  Sender: FDA-Public Use
  Company Number: ES-ROXANE LABORATORIES, INC-2007-DE-00226GD

PATIENT
  Age: 57 Year
  Sex: Male

DRUGS (5)
  1. ASPIRIN [Suspect]
  2. PARACETAMOL [Suspect]
  3. METAMIZOLE [Suspect]
     Indication: DENTAL CARIES
  4. DICLOFENAC SODIUM [Suspect]
  5. CLARITHROMYCIN [Suspect]
     Indication: DENTOFACIAL FUNCTIONAL DISORDER
     Route: 048

REACTIONS (1)
  - AGRANULOCYTOSIS [None]
